FAERS Safety Report 7315558-2 (Version None)
Quarter: 2011Q1

REPORT INFORMATION
  Report Type: 
  Country: None (occurrence: None)
  Receive Date: 20110215
  Receipt Date: 20110202
  Transmission Date: 20110831
  Serious: Yes (Death, Life-Threatening)
  Sender: FDA-Public Use
  Company Number: IDA-00496

PATIENT
  Sex: Male

DRUGS (9)
  1. LOXEN (NICARDIPINE HYDROCHLORIDE) [Suspect]
     Indication: HYPERTENSION
     Dosage: 50 MG BID TRANSPLACENTAL
     Route: 064
     Dates: end: 20100915
  2. SUFENTA (SUFENTANIL CITRATE) [Suspect]
     Dosage: DOSE TEXT: 10 UG/2 ML TRANSPLACENTAL
     Route: 064
     Dates: start: 20100915, end: 20100915
  3. XYLOCAINE [Suspect]
     Dosage: DOSE TEXT: 2% TRANSPLACENTAL
     Route: 064
     Dates: start: 20100915, end: 20100915
  4. CELOCURIN (SUXAMETHONIUM CHLORIDE) [Suspect]
     Indication: ANAESTHESIA
     Dosage: 70 MG ONCE TRANSPLACENTAL
     Route: 064
     Dates: start: 20100915
  5. (EPHEDRINE) [Suspect]
     Indication: GENERAL ANAESTHESIA
     Dosage: 2 DF TRANSPLACENTAL
     Route: 064
     Dates: start: 20100915, end: 20100915
  6. DIPRIVAN [Suspect]
     Indication: INDUCTION OF ANAESTHESIA
     Dosage: 210 MG ONCE TRANSPLACENTAL
     Route: 064
     Dates: start: 20100915
  7. AVLOCARDYL (PROPRANOLOL) [Suspect]
     Indication: HYPERTENSION
     Dosage: 10 MG DAILY TRANSPLACENTAL
     Route: 064
     Dates: end: 20100915
  8. NAROPEINE (ROPIVACAINE HYDROCHLORIDE) [Suspect]
     Dosage: DOSE TEXT: 7.5 MG/ML, 20 ML TRANSPLACENTAL
     Route: 064
     Dates: start: 20100915, end: 20100915
  9. TRACRIUM [Suspect]
     Indication: GENERAL ANAESTHESIA
     Dosage: DOSE TEXT: 25 MG/2.5 ML TRANSPLACENTAL
     Route: 064
     Dates: start: 20100915

REACTIONS (8)
  - CAESAREAN SECTION [None]
  - APPARENT DEATH [None]
  - CIRCULATORY FAILURE NEONATAL [None]
  - FOETAL HEART RATE DECREASED [None]
  - PREMATURE BABY [None]
  - APGAR SCORE LOW [None]
  - DRUG INTERACTION [None]
  - MATERNAL DRUGS AFFECTING FOETUS [None]
